FAERS Safety Report 8574505-6 (Version None)
Quarter: 2012Q3

REPORT INFORMATION
  Report Type: 
  Country: None (occurrence: None)
  Receive Date: 20120806
  Receipt Date: 20110829
  Transmission Date: 20120928
  Serious: No
  Sender: FDA-Public Use
  Company Number: US-ABBOTT-11P-163-0850905-00

PATIENT
  Sex: Male
  Weight: 32.234 kg

DRUGS (4)
  1. WELLBUTRIN [Concomitant]
     Indication: DEPRESSION
  2. DEPAKOTE ER [Suspect]
     Dates: start: 20110801, end: 20110801
  3. DEPAKOTE ER [Suspect]
     Dosage: ONE IN MORNING AND TWO IN EVENING
  4. DEPAKOTE ER [Suspect]
     Indication: BIPOLAR DISORDER
     Dosage: 2 IN 1 DAY, (1 IN AM AND 1 IN PM)
     Dates: start: 20110801, end: 20110801

REACTIONS (3)
  - ABNORMAL BEHAVIOUR [None]
  - DRUG EFFECT DECREASED [None]
  - INAPPROPRIATE SCHEDULE OF DRUG ADMINISTRATION [None]
